FAERS Safety Report 5506894-0 (Version None)
Quarter: 2007Q4

REPORT INFORMATION
  Report Type: 
  Country: None (occurrence: None)
  Receive Date: 20071105
  Receipt Date: 20071024
  Transmission Date: 20080405
  Serious: Yes (Other)
  Sender: FDA-Public Use
  Company Number: US-PFIZER INC-2007090865

PATIENT
  Sex: Female
  Weight: 102.27 kg

DRUGS (6)
  1. GABAPENTIN [Suspect]
     Indication: FIBROMYALGIA
     Dates: start: 20070906, end: 20071018
  2. ALL OTHER THERAPEUTIC PRODUCTS [Concomitant]
  3. SEROQUEL [Concomitant]
  4. FLEXERIL [Concomitant]
  5. OVCON-35 [Concomitant]
  6. PRILOSEC [Concomitant]

REACTIONS (2)
  - FEELING ABNORMAL [None]
  - SEDATION [None]
